FAERS Safety Report 17431747 (Version 5)
Quarter: 2020Q2

REPORT INFORMATION
  Report Type: Report from Study
  Country: None (occurrence: KR)
  Receive Date: 20200218
  Receipt Date: 20200401
  Transmission Date: 20200713
  Serious: Yes (Hospitalization)
  Sender: FDA-Public Use
  Company Number: KR-ABBVIE-20P-090-3271166-00

PATIENT
  Age: 54 Year
  Sex: Male
  Weight: 54 kg

DRUGS (33)
  1. DEXAMETHASONE. [Suspect]
     Active Substance: DEXAMETHASONE
     Dosage: CYCLE 9 AND BEYOND: DAYS 1, 2, 8, 9, 15, 16, 22 AND 23 OF 35-DAY CYCLE
     Route: 048
     Dates: start: 20170719, end: 20200123
  2. LYRICA [Concomitant]
     Active Substance: PREGABALIN
     Indication: PERIPHERAL SENSORY NEUROPATHY
     Route: 048
     Dates: start: 20111117, end: 20170406
  3. LYRICA [Concomitant]
     Active Substance: PREGABALIN
     Route: 048
     Dates: start: 20170629, end: 20170719
  4. SEPTRIN [Concomitant]
     Active Substance: SULFAMETHOXAZOLE\TRIMETHOPRIM
     Indication: ANTIBIOTIC PROPHYLAXIS
     Route: 048
     Dates: start: 20190313
  5. CODAEWON FORTE SYRUP [Concomitant]
     Route: 048
     Dates: start: 20191231, end: 20200112
  6. BORTEZOMIB. [Suspect]
     Active Substance: BORTEZOMIB
     Dosage: CYCLE 9 AND BEYOND: ON DAYS 1, 8, 15 AND 22 OF 35-DAY CYCLE
     Route: 058
     Dates: start: 20170719, end: 20171101
  7. BORTEZOMIB. [Suspect]
     Active Substance: BORTEZOMIB
     Dosage: CYCLE 9 AND BEYOND: ON DAYS 1, 8, 15 AND 22 OF 35-DAY CYCLE
     Route: 058
     Dates: start: 20190130, end: 20190604
  8. LYRICA [Concomitant]
     Active Substance: PREGABALIN
     Route: 048
     Dates: start: 20170619, end: 20170629
  9. LYRICA [Concomitant]
     Active Substance: PREGABALIN
     Route: 048
     Dates: start: 20170629, end: 20170719
  10. LYRICA [Concomitant]
     Active Substance: PREGABALIN
     Route: 048
     Dates: start: 20170719
  11. BORTEZOMIB. [Suspect]
     Active Substance: BORTEZOMIB
     Indication: PLASMA CELL MYELOMA
     Dosage: CYCLES 1-8: DAYS 1, 4, 8 AND 11 OF 21-DAY CYCLE
     Route: 058
     Dates: start: 20170202, end: 20170504
  12. DEXAMETHASONE. [Suspect]
     Active Substance: DEXAMETHASONE
     Indication: PLASMA CELL MYELOMA
     Dosage: CYCLE 1- 8: DAYS 1, 2, 4, 5, 8, 9, 11 AND 12 OF 21-DAY CYCLE
     Route: 048
     Dates: start: 20170202, end: 20170711
  13. DICAMAX [Concomitant]
     Indication: OSTEOPOROSIS PROPHYLAXIS
     Dosage: 1250/1000 MG/IU
     Route: 048
     Dates: start: 20160728
  14. BORTEZOMIB. [Suspect]
     Active Substance: BORTEZOMIB
     Dosage: CYCLE 9 AND BEYOND: ON DAYS 1, 8, 15 AND 22 OF 35-DAY CYCLE
     Route: 058
     Dates: start: 20190617, end: 20200122
  15. SEPTRIN [Concomitant]
     Active Substance: SULFAMETHOXAZOLE\TRIMETHOPRIM
     Indication: ANTIBIOTIC PROPHYLAXIS
     Route: 048
     Dates: start: 20170327, end: 20190312
  16. BORTEZOMIB. [Suspect]
     Active Substance: BORTEZOMIB
     Dosage: CYCLE 9 AND BEYOND: ON DAYS 1, 8, 15 AND 22 OF 35-DAY CYCLE
     Route: 058
     Dates: start: 20171108, end: 20180829
  17. GASTER [Concomitant]
     Active Substance: FAMOTIDINE
     Indication: GASTRITIS PROPHYLAXIS
     Route: 048
     Dates: start: 20170202
  18. CODAEWON FORTE SYRUP [Concomitant]
     Route: 048
     Dates: start: 20180605, end: 20180610
  19. CODAEWON FORTE SYRUP [Concomitant]
     Route: 048
     Dates: start: 20200129, end: 20200309
  20. VALACYCLOVIR [Concomitant]
     Active Substance: VALACYCLOVIR HYDROCHLORIDE
     Indication: ANTIVIRAL PROPHYLAXIS
     Route: 048
     Dates: start: 20170202
  21. LYRICA [Concomitant]
     Active Substance: PREGABALIN
     Route: 048
     Dates: start: 20170406, end: 20170619
  22. BORTEZOMIB. [Suspect]
     Active Substance: BORTEZOMIB
     Dosage: CYCLES 1-8: DAYS 1, 4, 8 AND 11 OF 21-DAY CYCLE
     Route: 058
     Dates: start: 20170518, end: 20170710
  23. BORTEZOMIB. [Suspect]
     Active Substance: BORTEZOMIB
     Dosage: CYCLE 9 AND BEYOND: ON DAYS 1, 8, 15 AND 22 OF 35-DAY CYCLE
     Route: 058
     Dates: start: 20180912, end: 20190116
  24. CRAVIT [Concomitant]
     Active Substance: LEVOFLOXACIN
     Indication: UPPER RESPIRATORY TRACT INFECTION
     Route: 048
     Dates: start: 20170719, end: 20170803
  25. CRAVIT [Concomitant]
     Active Substance: LEVOFLOXACIN
     Indication: ANTIBIOTIC PROPHYLAXIS
     Route: 048
     Dates: start: 20171214, end: 20171220
  26. CRAVIT [Concomitant]
     Active Substance: LEVOFLOXACIN
     Route: 048
     Dates: start: 20181002, end: 20181008
  27. CRAVIT [Concomitant]
     Active Substance: LEVOFLOXACIN
     Route: 048
     Dates: start: 20190313, end: 20200210
  28. CODAEWON FORTE SYRUP [Concomitant]
     Indication: UPPER RESPIRATORY TRACT INFECTION
     Route: 048
     Dates: start: 20181002, end: 20181030
  29. CODAEWON FORTE SYRUP [Concomitant]
     Indication: NASOPHARYNGITIS
     Route: 048
     Dates: start: 20170719, end: 20170726
  30. CODAEWON FORTE SYRUP [Concomitant]
     Indication: INFLUENZA
     Route: 048
     Dates: start: 20171206, end: 20171220
  31. CODAEWON FORTE SYRUP [Concomitant]
     Route: 048
     Dates: start: 20180210, end: 20180213
  32. VENETOCLAX. [Suspect]
     Active Substance: VENETOCLAX
     Indication: PLASMA CELL MYELOMA
     Dosage: CYCLES 1-8: DAYS 1-21; CYCLE 9 AND BEYOND: DAYS 1-35
     Route: 048
     Dates: start: 20170202, end: 20200128
  33. SEPTRIN [Concomitant]
     Active Substance: SULFAMETHOXAZOLE\TRIMETHOPRIM
     Indication: INFECTION PROPHYLAXIS
     Route: 048
     Dates: start: 20170202, end: 20170326

REACTIONS (1)
  - Pneumonia influenzal [Recovered/Resolved]

NARRATIVE: CASE EVENT DATE: 20200207
